FAERS Safety Report 15791229 (Version 1)
Quarter: 2019Q1

REPORT INFORMATION
  Report Type: Spontaneous
  Country: US (occurrence: US)
  Receive Date: 20190104
  Receipt Date: 20190104
  Transmission Date: 20190417
  Serious: No
  Sender: FDA-Public Use
  Company Number: US-SOMERSET-2018-US-000022

PATIENT
  Sex: Female

DRUGS (1)
  1. CYANOCOBALAMIN INJECTION - 1ML [Suspect]
     Active Substance: CYANOCOBALAMIN
     Dates: start: 20181106, end: 20181106

REACTIONS (2)
  - Vomiting [Recovered/Resolved]
  - Migraine [Recovered/Resolved]

NARRATIVE: CASE EVENT DATE: 20181106
